FAERS Safety Report 10465701 (Version 2)
Quarter: 2014Q4

REPORT INFORMATION
  Report Type: Spontaneous
  Country: US (occurrence: US)
  Receive Date: 20140919
  Receipt Date: 20141017
  Transmission Date: 20150528
  Serious: Yes (Death, Hospitalization, Other)
  Sender: FDA-Public Use
  Company Number: US-B.I. PHARMACEUTICALS,INC./RIDGEFIELD-2014-BI-43539BP

PATIENT
  Age: 62 Year
  Sex: Male

DRUGS (6)
  1. POTASSIUM CHLORIDE. [Concomitant]
     Active Substance: POTASSIUM CHLORIDE
     Indication: PRODUCT USED FOR UNKNOWN INDICATION
     Dosage: 20 MEQ
     Route: 065
  2. PRADAXA [Suspect]
     Active Substance: DABIGATRAN ETEXILATE MESYLATE
     Indication: ATRIAL FIBRILLATION
     Dosage: 300 MG
     Route: 048
     Dates: end: 20140506
  3. TORSEMIDE. [Concomitant]
     Active Substance: TORSEMIDE
     Indication: PRODUCT USED FOR UNKNOWN INDICATION
     Dosage: 60 MG
     Route: 065
  4. TORSEMIDE. [Concomitant]
     Active Substance: TORSEMIDE
     Dosage: 20 MG
     Route: 065
  5. COREG [Concomitant]
     Active Substance: CARVEDILOL
     Indication: PRODUCT USED FOR UNKNOWN INDICATION
     Dosage: STRENGTH: 3.125; DAILY DOSE: 6.250
     Route: 048
  6. DOXYCYCLINE. [Concomitant]
     Active Substance: DOXYCYCLINE
     Indication: PRODUCT USED FOR UNKNOWN INDICATION
     Dosage: 200 MG
     Route: 048

REACTIONS (17)
  - Coagulopathy [Unknown]
  - Renal mass [Unknown]
  - Alveolar lung disease [Unknown]
  - Metabolic encephalopathy [Unknown]
  - Metastases to lung [Unknown]
  - Hepatic cirrhosis [Unknown]
  - Toxicity to various agents [Unknown]
  - Acute kidney injury [Unknown]
  - Retroperitoneal lymphadenopathy [Unknown]
  - Ventricular tachycardia [Unknown]
  - Decubitus ulcer [Unknown]
  - Pleural effusion [Unknown]
  - Ischaemic hepatitis [Unknown]
  - Multi-organ failure [Fatal]
  - Chronic kidney disease [Unknown]
  - Haematuria [Unknown]
  - Hypotension [Unknown]

NARRATIVE: CASE EVENT DATE: 2013
